FAERS Safety Report 6599720-2 (Version None)
Quarter: 2010Q1

REPORT INFORMATION
  Report Type: 
  Country: None (occurrence: None)
  Receive Date: 20100212
  Receipt Date: 20100126
  Transmission Date: 20100710
  Serious: No
  Sender: FDA-Public Use
  Company Number: 2010-00083

PATIENT
  Age: 36 Year
  Sex: Male
  Weight: 113.3993 kg

DRUGS (6)
  1. ZICAM NASAL PRODUCTS [Suspect]
     Dosage: QD,ENTIRE BOTTLE IN 2WKS
  2. LIPITOR [Concomitant]
  3. NIASPAN [Concomitant]
  4. OMEPRAZOLE [Concomitant]
  5. ASPIRIN [Concomitant]
  6. MEN'S HEALTH MULTIVITAMIN [Concomitant]

REACTIONS (2)
  - AGEUSIA [None]
  - ANOSMIA [None]
